FAERS Safety Report 4294407-3 (Version None)
Quarter: 2004Q1

REPORT INFORMATION
  Report Type: 
  Country: None (occurrence: None)
  Receive Date: 20040211
  Receipt Date: 20040130
  Transmission Date: 20041129
  Serious: Yes (Life-Threatening, Hospitalization)
  Sender: FDA-Public Use
  Company Number: 03P-163-0244152-00

PATIENT
  Age: 30 Year
  Sex: Male
  Weight: 93.441 kg

DRUGS (5)
  1. HUMIRA [Suspect]
     Indication: PSORIATIC ARTHROPATHY
     Dosage: 1 IN 2 WK, SUBCUTANEOUS
     Route: 058
     Dates: start: 20031201, end: 20040106
  2. SIMVASTATIN [Concomitant]
  3. ALPRAZOLAM [Concomitant]
  4. VICODIN [Concomitant]
  5. PARACETAMOL [Concomitant]

REACTIONS (31)
  - ASTHENIA [None]
  - BLOOD PRESSURE SYSTOLIC INCREASED [None]
  - BODY TEMPERATURE DECREASED [None]
  - CONFUSIONAL STATE [None]
  - DECREASED APPETITE [None]
  - DIZZINESS [None]
  - DRUG ABUSER [None]
  - DYSPNOEA [None]
  - ERYTHEMA [None]
  - FALL [None]
  - FATIGUE [None]
  - FEELING ABNORMAL [None]
  - HAEMODIALYSIS [None]
  - HEADACHE [None]
  - HYPERURICAEMIA [None]
  - JOINT EFFUSION [None]
  - LETHARGY [None]
  - MALAISE [None]
  - MASS [None]
  - NUCLEAR MAGNETIC RESONANCE IMAGING ABNORMAL [None]
  - OEDEMA [None]
  - PAIN [None]
  - PYREXIA [None]
  - RENAL FAILURE [None]
  - RHABDOMYOLYSIS [None]
  - SKIN DISORDER [None]
  - SKIN ULCER [None]
  - SWELLING [None]
  - TENDERNESS [None]
  - THERMAL BURN [None]
  - TOXICOLOGIC TEST ABNORMAL [None]
